FAERS Safety Report 8137439-7 (Version None)
Quarter: 2012Q1

REPORT INFORMATION
  Report Type: 
  Country: None (occurrence: None)
  Receive Date: 20120215
  Receipt Date: 20120209
  Transmission Date: 20120608
  Serious: Yes (Disabling)
  Sender: FDA-Public Use
  Company Number: GB-TEVA-321645ISR

PATIENT
  Age: 83 Year
  Sex: Female
  Weight: 68.45 kg

DRUGS (1)
  1. NITROFURANTOIN [Suspect]

REACTIONS (1)
  - CHOREOATHETOSIS [None]
